FAERS Safety Report 23873907 (Version 1)
Quarter: 2024Q2

REPORT INFORMATION
  Report Type: Spontaneous
  Country: US (occurrence: None)
  Receive Date: 20240517
  Receipt Date: 20240517
  Transmission Date: 20240716
  Serious: Yes (Hospitalization)
  Sender: FDA-Public Use
  Company Number: None

PATIENT
  Sex: Female

DRUGS (2)
  1. PROLIA [Suspect]
     Active Substance: DENOSUMAB
     Indication: Osteoporosis
     Dosage: 60 MG  EVERY 6 MONTHS SUBCUTANEOUS?
     Route: 058
     Dates: start: 202308
  2. ELFABRIO [Concomitant]

REACTIONS (2)
  - Hip fracture [None]
  - Cerebrovascular accident [None]
